FAERS Safety Report 4425580-1 (Version None)
Quarter: 2004Q3

REPORT INFORMATION
  Report Type: 
  Country: None (occurrence: None)
  Receive Date: 20040810
  Receipt Date: 20040730
  Transmission Date: 20050211
  Serious: Yes (Other)
  Sender: FDA-Public Use
  Company Number: 200413776BCC

PATIENT
  Age: 89 Year
  Sex: Male
  Weight: 73.0291 kg

DRUGS (2)
  1. ALEVE (CAPLET) [Suspect]
     Indication: CHEST PAIN
     Dosage: 440 MG, ONCE, ORAL
     Route: 048
     Dates: start: 20040723
  2. ASPIRIN [Suspect]
     Indication: CHEST PAIN
     Dosage: 650 MG, ONCE, ORAL
     Route: 048
     Dates: start: 20040723

REACTIONS (2)
  - DRUG INEFFECTIVE [None]
  - MYOCARDIAL INFARCTION [None]
